FAERS Safety Report 19488182 (Version 1)
Quarter: 2021Q3

REPORT INFORMATION
  Report Type: Spontaneous
  Country: TW (occurrence: TW)
  Receive Date: 20210702
  Receipt Date: 20210702
  Transmission Date: 20211014
  Serious: Yes (Other)
  Sender: FDA-Public Use
  Company Number: NVSC2021TW144413

PATIENT
  Sex: Male

DRUGS (1)
  1. CYCLOSPORINE. [Suspect]
     Active Substance: CYCLOSPORINE
     Indication: PRODUCT USED FOR UNKNOWN INDICATION
     Dosage: UNK
     Route: 065

REACTIONS (2)
  - Acute graft versus host disease [Unknown]
  - Chronic graft versus host disease [Unknown]
